FAERS Safety Report 7955481-3 (Version None)
Quarter: 2011Q4

REPORT INFORMATION
  Report Type: 
  Country: None (occurrence: None)
  Receive Date: 20111202
  Receipt Date: 20111128
  Transmission Date: 20120403
  Serious: Yes (Death)
  Sender: FDA-Public Use
  Company Number: US-GILEAD-2011-0046908

PATIENT
  Sex: Male

DRUGS (2)
  1. LETAIRIS [Suspect]
     Indication: PORTOPULMONARY HYPERTENSION
     Dosage: UNK
  2. LETAIRIS [Suspect]
     Indication: UNEVALUABLE EVENT

REACTIONS (2)
  - CARDIAC FAILURE [None]
  - PERICARDIAL EFFUSION [None]
